FAERS Safety Report 4698062-X (Version None)
Quarter: 2005Q2

REPORT INFORMATION
  Report Type: 
  Country: None (occurrence: None)
  Receive Date: 20050621
  Receipt Date: 20050608
  Transmission Date: 20051028
  Serious: No
  Sender: FDA-Public Use
  Company Number: 11473

PATIENT
  Sex: Female

DRUGS (1)
  1. PAMIDRONATE DISODIUM [Suspect]

REACTIONS (1)
  - POSTMENOPAUSAL HAEMORRHAGE [None]
